FAERS Safety Report 8204806-2 (Version None)
Quarter: 2012Q1

REPORT INFORMATION
  Report Type: 
  Country: None (occurrence: None)
  Receive Date: 20120309
  Receipt Date: 20120305
  Transmission Date: 20120608
  Serious: Yes (Other)
  Sender: FDA-Public Use
  Company Number: 2012MA003001

PATIENT
  Age: 53 Year
  Sex: Female

DRUGS (2)
  1. HYDROCORTISONE 1%-P CREAM [Suspect]
     Indication: HORMONE REPLACEMENT THERAPY
     Dosage: 20 MG, QD
  2. LEVOTHYROXINE SODIUM [Concomitant]

REACTIONS (3)
  - HALLUCINATION, VISUAL [None]
  - PSYCHOTIC DISORDER [None]
  - ANXIETY [None]
